FAERS Safety Report 8006993-8 (Version None)
Quarter: 2011Q4

REPORT INFORMATION
  Report Type: 
  Country: None (occurrence: None)
  Receive Date: 20111227
  Receipt Date: 20111216
  Transmission Date: 20120403
  Serious: Yes (Other)
  Sender: FDA-Public Use
  Company Number: PHEH2011US010147

PATIENT
  Sex: Female

DRUGS (17)
  1. LOSARTAN POTASSIUM [Suspect]
     Dosage: 1 UNK, UNK
     Route: 048
  2. METFORMIN [Concomitant]
     Indication: DIABETES MELLITUS
     Dosage: UNK
  3. VICODIN [Concomitant]
     Indication: PAIN
     Dosage: 5MG/500MG 1X6 HRS
  4. LOSARTAN POTASSIUM AND HYDROCHLOROTHIAZIDE [Suspect]
     Indication: HYPERTENSION
     Dosage: 1 DF (100/12.5 MG), DAILY
     Route: 048
  5. LYRICA [Concomitant]
     Indication: NEUROPATHY PERIPHERAL
     Dosage: 1 DF (75 MG), TID
  6. SYMLIN [Concomitant]
     Indication: DIABETES MELLITUS
  7. ZETIA [Concomitant]
     Dosage: 10 MG, DAILY
  8. ISO-BID [Concomitant]
     Dosage: UNK
  9. VITAMIN D [Concomitant]
     Dosage: 50,000 IU, BIW
  10. LIPITOR [Concomitant]
     Dosage: 40 MG, DAILY
  11. REGLAN [Concomitant]
     Dosage: 10 MG, PRN
  12. TRAMADOL HCL [Suspect]
     Indication: PAIN
     Dosage: 50 MG, 1 OR 2 X 6 HRS
  13. ASPIRIN [Concomitant]
     Dosage: 81 MG, BID
  14. DIOVAN [Suspect]
     Indication: HYPERTENSION
     Dosage: 1 DF (160/12.5 MG), QD
  15. CARDIZEM CD [Concomitant]
     Dosage: 180 MG, DAILY
     Route: 048
  16. ISOSORBIDE MONONITRATE [Concomitant]
     Dosage: 20 MG, BID
  17. HUMALOG [Concomitant]
     Indication: DIABETES MELLITUS

REACTIONS (12)
  - GAIT DISTURBANCE [None]
  - DYSPNOEA [None]
  - CHEST DISCOMFORT [None]
  - FALL [None]
  - BRONCHITIS [None]
  - COUGH [None]
  - BALANCE DISORDER [None]
  - DIZZINESS [None]
  - BLOOD PRESSURE DECREASED [None]
  - OEDEMA PERIPHERAL [None]
  - FOOT FRACTURE [None]
  - PRURITUS GENERALISED [None]
